FAERS Safety Report 16564372 (Version 1)
Quarter: 2019Q3

REPORT INFORMATION
  Report Type: Report from Study
  Country: IR (occurrence: IR)
  Receive Date: 20190712
  Receipt Date: 20190712
  Transmission Date: 20191004
  Serious: Yes (Hospitalization, Other)
  Sender: FDA-Public Use
  Company Number: IR-ACCORD-138120

PATIENT
  Sex: Female

DRUGS (1)
  1. METHOTREXATE. [Suspect]
     Active Substance: METHOTREXATE
     Dosage: 2.5 X UNDETERMINED?NUMBER
     Route: 048

REACTIONS (5)
  - Vomiting [Unknown]
  - Toxicity to various agents [Unknown]
  - Nausea [Unknown]
  - Overdose [Unknown]
  - Suicide attempt [Unknown]
